FAERS Safety Report 17191275 (Version 1)
Quarter: 2019Q4

REPORT INFORMATION
  Report Type: Spontaneous
  Country: US (occurrence: US)
  Receive Date: 20191220
  Receipt Date: 20191220
  Transmission Date: 20200122
  Serious: Yes (Other)
  Sender: FDA-Public Use
  Company Number: None

PATIENT
  Age: 27 Year
  Weight: 77.85 kg

DRUGS (1)
  1. CHLORASEPTIC MAX [Suspect]
     Active Substance: BENZOCAINE\MENTHOL
     Indication: OROPHARYNGEAL PAIN
     Dosage: ?          QUANTITY:15 TABLET(S);OTHER FREQUENCY:ONLY TOOK 1 DOSE;?
     Route: 048
     Dates: start: 20191220, end: 20191220

REACTIONS (5)
  - Visual impairment [None]
  - Dyspnoea [None]
  - Loss of consciousness [None]
  - Chest pain [None]
  - Heart rate increased [None]

NARRATIVE: CASE EVENT DATE: 20191220
